FAERS Safety Report 9768945 (Version 2)
Quarter: 2014Q1

REPORT INFORMATION
  Report Type: Spontaneous
  Country: DK (occurrence: DK)
  Receive Date: 20131218
  Receipt Date: 20140106
  Transmission Date: 20141002
  Serious: Yes (Death)
  Sender: FDA-Public Use
  Company Number: DK-ROCHE-1320985

PATIENT
  Age: 62 Year
  Sex: Female

DRUGS (1)
  1. ROACTEMRA [Suspect]
     Indication: RHEUMATOID ARTHRITIS
     Route: 042
     Dates: start: 20131114, end: 20131127

REACTIONS (4)
  - Oropharyngeal pain [Fatal]
  - Pyrexia [Fatal]
  - Infection [Fatal]
  - Fall [Fatal]
